FAERS Safety Report 9250030 (Version 3)
Quarter: 2014Q1

REPORT INFORMATION
  Report Type: Spontaneous
  Country: US (occurrence: US)
  Receive Date: 20130424
  Receipt Date: 20140205
  Transmission Date: 20141002
  Serious: Yes (Death, Disabling, Other)
  Sender: FDA-Public Use
  Company Number: US-ASTRAZENECA-2013SE27326

PATIENT
  Age: 54 Year
  Sex: Male
  Weight: 135.6 kg

DRUGS (17)
  1. NEXIUM [Suspect]
     Indication: GASTROOESOPHAGEAL REFLUX DISEASE
     Route: 048
     Dates: start: 200205
  2. NEXIUM [Suspect]
     Indication: GASTROOESOPHAGEAL REFLUX DISEASE
     Route: 048
     Dates: start: 20110825
  3. TUMS [Concomitant]
     Indication: DYSPEPSIA
     Dosage: AS NEEDED
  4. ROLAIDS [Concomitant]
     Indication: DYSPEPSIA
     Dosage: AS NEEDED
  5. PEPTO BISMOL [Concomitant]
     Indication: DYSPEPSIA
     Dosage: AS NEEDED
  6. ALTACE [Concomitant]
     Dates: start: 20110825
  7. ASPIRIN [Concomitant]
     Dates: start: 20110825
  8. AVANDIA [Concomitant]
     Dates: start: 20110825
  9. CELEBREX [Concomitant]
     Dates: start: 20110825
  10. CELEXA [Concomitant]
     Dates: start: 20110825
  11. GLYBURIDE [Concomitant]
     Dosage: 5-500 MG, 2 TWICE A DAY
     Dates: start: 20110825
  12. PLAVIX [Concomitant]
     Dates: start: 20110825
  13. RYTHMOL [Concomitant]
     Dates: start: 20110825
  14. ULTRAM [Concomitant]
  15. WELLBUTRIN SR [Concomitant]
     Dates: start: 20110825
  16. ZOCOR [Concomitant]
     Dates: start: 20110825
  17. LIPITOR [Concomitant]
     Dates: start: 200511

REACTIONS (25)
  - Death [Fatal]
  - Cerebrovascular accident [Unknown]
  - Back injury [Unknown]
  - Back pain [Unknown]
  - Osteoporosis [Unknown]
  - Bone disorder [Unknown]
  - Foot fracture [Unknown]
  - Joint injury [Unknown]
  - Neck injury [Unknown]
  - Pain [Unknown]
  - Meniscus injury [Unknown]
  - Aortic disorder [Unknown]
  - Arthritis [Unknown]
  - Cardiovascular disorder [Unknown]
  - Type 2 diabetes mellitus [Unknown]
  - Intervertebral disc annular tear [Unknown]
  - Osteoarthritis [Unknown]
  - Diabetic vascular disorder [Unknown]
  - Sciatica [Unknown]
  - Intervertebral disc degeneration [Unknown]
  - Sacroiliitis [Unknown]
  - Lumbar radiculopathy [Unknown]
  - Vertebral osteophyte [Unknown]
  - Contusion [Unknown]
  - Constipation [Unknown]
